FAERS Safety Report 11768452 (Version 2)
Quarter: 2015Q4

REPORT INFORMATION
  Report Type: Spontaneous
  Country: JP (occurrence: JP)
  Receive Date: 20151123
  Receipt Date: 20151230
  Transmission Date: 20160304
  Serious: Yes (Hospitalization)
  Sender: FDA-Public Use
  Company Number: JP-MYLANLABS-2015M1039645

PATIENT

DRUGS (1)
  1. PREDNISOLONE. [Suspect]
     Active Substance: PREDNISOLONE
     Indication: NON-HODGKIN^S LYMPHOMA
     Dosage: 17.5 MG, UNK
     Route: 048

REACTIONS (4)
  - Aspergillus infection [Recovering/Resolving]
  - Chest pain [Unknown]
  - Anaemia [Unknown]
  - Tracheobronchitis [Recovering/Resolving]
